FAERS Safety Report 6732813-5 (Version None)
Quarter: 2010Q2

REPORT INFORMATION
  Report Type: 
  Country: None (occurrence: None)
  Receive Date: 20100519
  Receipt Date: 20100510
  Transmission Date: 20101027
  Serious: Yes (Hospitalization)
  Sender: FDA-Public Use
  Company Number: US-MPIJNJ-2010-02378

PATIENT
  Sex: Male

DRUGS (19)
  1. VELCADE [Suspect]
     Indication: MULTIPLE MYELOMA
     Dosage: 1.00 MG/M2, CYCLIC
     Route: 042
     Dates: start: 20070501, end: 20080220
  2. LENALIDOMIDE [Suspect]
     Indication: MULTIPLE MYELOMA
     Dosage: 20 MG, CYCLIC
     Route: 048
     Dates: start: 20070501, end: 20080226
  3. DEXAMETHASONE [Suspect]
     Indication: MULTIPLE MYELOMA
     Dosage: 10 MG, CYCLIC
     Route: 048
     Dates: start: 20070501, end: 20080313
  4. DEXAMETHASONE [Suspect]
     Dosage: 20 MG, CYCLIC
  5. ASPIRIN [Concomitant]
     Indication: DRUG USE FOR UNKNOWN INDICATION
  6. MYCELEX [Concomitant]
     Indication: DRUG USE FOR UNKNOWN INDICATION
  7. ACYCLOVIR [Concomitant]
     Indication: DRUG USE FOR UNKNOWN INDICATION
  8. BACTRIM DS [Concomitant]
     Indication: DRUG USE FOR UNKNOWN INDICATION
  9. ARANESP [Concomitant]
     Indication: DRUG USE FOR UNKNOWN INDICATION
  10. NEUPOGEN [Concomitant]
     Indication: DRUG USE FOR UNKNOWN INDICATION
  11. PAMIDRONATE DISODIUM [Concomitant]
     Indication: DRUG USE FOR UNKNOWN INDICATION
  12. FERRO-SEQUELS [Concomitant]
     Indication: DRUG USE FOR UNKNOWN INDICATION
  13. FLECAINIDE ACETATE [Concomitant]
     Indication: DRUG USE FOR UNKNOWN INDICATION
  14. METOPROLOL TARTRATE [Concomitant]
     Indication: DRUG USE FOR UNKNOWN INDICATION
  15. OCUVITE                            /01762701/ [Concomitant]
     Indication: DRUG USE FOR UNKNOWN INDICATION
  16. OMEGA-3 TRIGLYCERIDES [Concomitant]
     Indication: DRUG USE FOR UNKNOWN INDICATION
  17. PREVACID [Concomitant]
     Indication: DRUG USE FOR UNKNOWN INDICATION
  18. TRIAMCINOLONE [Concomitant]
     Indication: DRUG USE FOR UNKNOWN INDICATION
  19. VITAMIN C                          /00008001/ [Concomitant]
     Indication: DRUG USE FOR UNKNOWN INDICATION

REACTIONS (1)
  - ATRIAL FIBRILLATION [None]
